FAERS Safety Report 7962832-2 (Version None)
Quarter: 2011Q4

REPORT INFORMATION
  Report Type: 
  Country: None (occurrence: None)
  Receive Date: 20111207
  Receipt Date: 20111202
  Transmission Date: 20120403
  Serious: Yes (Hospitalization, Other)
  Sender: FDA-Public Use
  Company Number: CL-PFIZER INC-2011199173

PATIENT
  Sex: Female

DRUGS (5)
  1. SERTRALINE HYDROCHLORIDE [Suspect]
     Dosage: 50 MG, 1X/DAY
     Route: 064
  2. RAVOTRIL [Concomitant]
     Dosage: 0.7 MG, 1X/DAY
     Route: 064
  3. SERTRALINE HYDROCHLORIDE [Suspect]
     Dosage: 75 MG
     Route: 064
     Dates: start: 20091111
  4. SERTRALINE HYDROCHLORIDE [Suspect]
     Dosage: 50 MG, 1X/DAY
     Route: 064
  5. SERTRALINE HYDROCHLORIDE [Suspect]
     Dosage: 100 MG, 1X/DAY
     Route: 064

REACTIONS (3)
  - PULMONARY HYPERTENSION [None]
  - MATERNAL EXPOSURE TIMING UNSPECIFIED [None]
  - HYPOXIA [None]
